FAERS Safety Report 4535522-6 (Version None)
Quarter: 2004Q4

REPORT INFORMATION
  Report Type: 
  Country: None (occurrence: None)
  Receive Date: 20041222
  Receipt Date: 20041217
  Transmission Date: 20050328
  Serious: Yes (Hospitalization)
  Sender: FDA-Public Use
  Company Number: FR-MERCK-0412FRA00066

PATIENT
  Age: 83 Year
  Sex: Female

DRUGS (3)
  1. HYZAAR [Suspect]
     Indication: HYPERTENSION
     Route: 048
     Dates: end: 20041201
  2. FELODIPINE [Suspect]
     Indication: HYPERTENSION
     Route: 048
     Dates: end: 20041201
  3. ZOCOR [Suspect]
     Indication: HYPERCHOLESTEROLAEMIA
     Route: 048
     Dates: end: 20041201

REACTIONS (3)
  - DRUG ERUPTION [None]
  - PRURIGO [None]
  - PRURITUS GENERALISED [None]
